FAERS Safety Report 24384865 (Version 1)
Quarter: 2024Q4

REPORT INFORMATION
  Report Type: Spontaneous
  Country: GB (occurrence: GB)
  Receive Date: 20241001
  Receipt Date: 20241001
  Transmission Date: 20250115
  Serious: Yes (Disabling, Other)
  Sender: DR REDDYS
  Company Number: None

PATIENT
  Age: 77 Year
  Sex: Male

DRUGS (1)
  1. BENDAMUSTINE [Suspect]
     Active Substance: BENDAMUSTINE
     Indication: Waldenstrom^s macroglobulinaemia
     Dosage: 125MG DAYS 1-2 OF 28 DAY CYCLE
     Dates: start: 20240606, end: 20240828

REACTIONS (1)
  - Photophobia [Recovering/Resolving]

NARRATIVE: CASE EVENT DATE: 20240829
